FAERS Safety Report 4544772-4 (Version None)
Quarter: 2004Q4

REPORT INFORMATION
  Report Type: 
  Country: None (occurrence: None)
  Receive Date: 20041230
  Receipt Date: 20041215
  Transmission Date: 20050328
  Serious: Yes (Hospitalization)
  Sender: FDA-Public Use
  Company Number: 207265

PATIENT
  Age: 60 Year
  Sex: Female

DRUGS (1)
  1. AVONEX [Suspect]
     Indication: MULTIPLE SCLEROSIS
     Dosage: 30 UG; QW; IM
     Route: 030
     Dates: start: 20040614, end: 20041024

REACTIONS (6)
  - BALANCE DISORDER [None]
  - DEAFNESS UNILATERAL [None]
  - FORMICATION [None]
  - MALAISE [None]
  - NAUSEA [None]
  - NERVOUSNESS [None]
